FAERS Safety Report 7542056-3 (Version None)
Quarter: 2011Q2

REPORT INFORMATION
  Report Type: 
  Country: None (occurrence: None)
  Receive Date: 20110613
  Receipt Date: 20110603
  Transmission Date: 20111010
  Serious: Yes (Hospitalization)
  Sender: FDA-Public Use
  Company Number: KR-ASTELLAS-2011JP003624

PATIENT
  Sex: Female
  Weight: 55.8 kg

DRUGS (11)
  1. MUTERAN [Concomitant]
     Dosage: 400 MG, UNKNOWN/D
     Route: 048
     Dates: start: 20110527, end: 20110529
  2. COUGH SYRUP [Concomitant]
     Dosage: 60 ML, UNKNOWN/D
     Route: 048
     Dates: start: 20110527
  3. CEFOTAXIME [Concomitant]
     Dosage: 3 G, UNKNOWN/D
     Route: 048
     Dates: start: 20110527, end: 20110529
  4. CELLCEPT [Concomitant]
     Dosage: 750 MG, BID
     Route: 048
     Dates: start: 20110201
  5. TACROLIMUS [Suspect]
     Indication: IMMUNOSUPPRESSANT DRUG THERAPY
     Dosage: 8 MG, UNKNOWN/D
     Route: 048
     Dates: start: 20110131
  6. CODEINE SULFATE [Concomitant]
     Dosage: 2 DF, UNKNOWN/D
     Route: 048
     Dates: start: 20110527
  7. ADALAT [Concomitant]
     Dosage: 60 MG, UNKNOWN/D
     Route: 048
     Dates: start: 20110205
  8. SOLONDO [Concomitant]
     Dosage: 5 MG, BID
     Route: 048
     Dates: start: 20110130
  9. TYLENOL-500 [Concomitant]
     Dosage: 1950 MG, UNKNOWN/D
     Route: 048
     Dates: start: 20110527, end: 20110529
  10. SEPTRA [Concomitant]
     Dosage: 2 DF, UNKNOWN/D
     Route: 048
     Dates: start: 20110130
  11. BISOLVON [Concomitant]
     Dosage: 24 MG, UNKNOWN/D
     Route: 048
     Dates: start: 20110527, end: 20110529

REACTIONS (3)
  - COUGH [None]
  - RHINORRHOEA [None]
  - PYREXIA [None]
